FAERS Safety Report 9233151 (Version 1)
Quarter: 2013Q1

REPORT INFORMATION
  Report Type: Spontaneous
  Country: US (occurrence: None)
  Receive Date: 20121031
  Receipt Date: 20121031
  Transmission Date: 20140127
  Serious: No
  Sender: FDA-Public Use
  Company Number: PHEH2012US012025

PATIENT
  Age: 49 Year
  Sex: Female

DRUGS (3)
  1. GILENYA (FTY)CAPSULE, 0.5MG [Suspect]
     Indication: MULTIPLE SCLEROSIS
     Route: 048
     Dates: start: 20120614
  2. HYDRACODONE (HYDROCODONE) [Concomitant]
  3. DURAGESIC (FENTANYL) PATCH [Concomitant]

REACTIONS (3)
  - Nerve injury [None]
  - Musculoskeletal stiffness [None]
  - Neuralgia [None]
